FAERS Safety Report 6370666-8 (Version None)
Quarter: 2009Q3

REPORT INFORMATION
  Report Type: 
  Country: None (occurrence: None)
  Receive Date: 20090923
  Receipt Date: 20070529
  Transmission Date: 20100115
  Serious: Yes (Other)
  Sender: FDA-Public Use
  Company Number: US-ASTRAZENECA-2006UW26310

PATIENT
  Age: 18222 Day
  Sex: Male

DRUGS (13)
  1. SEROQUEL [Suspect]
     Indication: NERVOUSNESS
     Route: 048
     Dates: start: 19990517
  2. HALDOL [Concomitant]
  3. RISPERDAL [Concomitant]
  4. OLANZAPINE [Concomitant]
     Dates: start: 19971027
  5. MECLIZINE [Concomitant]
     Dates: start: 19990810
  6. VIOXX [Concomitant]
     Indication: BACK PAIN
     Dates: start: 20010508
  7. LITHOBID [Concomitant]
     Dates: start: 20010606
  8. LIPITOR [Concomitant]
     Dosage: 5-10 MG
     Dates: start: 19990812
  9. EFFEXOR XR [Concomitant]
     Dates: start: 20010815
  10. CLARITIN [Concomitant]
     Dosage: 1 TABLET TWICE A DAY
     Dates: start: 19961120
  11. UNIRETIC [Concomitant]
     Dosage: STRENGTH 7.5/12.5 MG
     Dates: start: 20000726
  12. UNIVASC [Concomitant]
     Dates: start: 20000319
  13. PROZAC [Concomitant]
     Dates: end: 20050124

REACTIONS (2)
  - DIABETES MELLITUS [None]
  - DIABETES MELLITUS INADEQUATE CONTROL [None]
